FAERS Safety Report 5198009-6 (Version None)
Quarter: 2007Q1

REPORT INFORMATION
  Report Type: 
  Country: None (occurrence: None)
  Receive Date: 20070104
  Receipt Date: 20061227
  Transmission Date: 20070707
  Serious: Yes (Hospitalization)
  Sender: FDA-Public Use
  Company Number: US-JNJFOC-20061002657

PATIENT
  Sex: Male
  Weight: 74.84 kg

DRUGS (11)
  1. FENTANYL TRANSDERMAL SYSTEM [Suspect]
     Route: 062
  2. FENTANYL TRANSDERMAL SYSTEM [Suspect]
     Route: 062
  3. FENTANYL TRANSDERMAL SYSTEM [Suspect]
     Route: 062
  4. FENTANYL TRANSDERMAL SYSTEM [Suspect]
     Indication: ARTHRITIS
     Dosage: 1X100UG/HR + 2X25UG/HR PATCHES
     Route: 062
  5. FENTANYL TRANSDERMAL SYSTEM [Suspect]
     Indication: ARTHRITIS
     Dosage: 2X75UG/HR PATCHES
     Route: 062
  6. NORCO [Concomitant]
     Indication: PAIN
     Dosage: 10/325MG AS NEEDED
     Route: 048
  7. TOPROL-XL [Concomitant]
     Dosage: 1.5X50MG TABLETS
     Route: 048
  8. TEMAZEPAM [Concomitant]
     Indication: SLEEP DISORDER
     Route: 048
  9. VALIUM [Concomitant]
     Dosage: AS NEEDED
     Route: 048
  10. REGLAN [Concomitant]
     Dosage: 1 BEFORE EVENING MEAL
     Route: 048
  11. NEXIUM [Concomitant]
     Indication: DYSPEPSIA
     Route: 048

REACTIONS (6)
  - CHANGE OF BOWEL HABIT [None]
  - DRUG WITHDRAWAL SYNDROME [None]
  - EXPIRED DRUG ADMINISTERED [None]
  - GASTRITIS [None]
  - INFECTION [None]
  - RETCHING [None]
